FAERS Safety Report 12667992 (Version 1)
Quarter: 2016Q3

REPORT INFORMATION
  Report Type: Report from Study
  Country: US (occurrence: US)
  Receive Date: 20160819
  Receipt Date: 20160819
  Transmission Date: 20161109
  Serious: Yes (Death, Hospitalization)
  Sender: FDA-Public Use
  Company Number: US-PFIZER INC-2015033316

PATIENT
  Age: 52 Year
  Sex: Male
  Weight: 85 kg

DRUGS (4)
  1. ALPHA LIPOIC ACID [Concomitant]
     Active Substance: .ALPHA.-LIPOIC ACID
  2. VITAMIN B COMPLEX [Concomitant]
     Active Substance: CYANOCOBALAMIN\DEXPANTHENOL\NIACINAMIDE\PYRIDOXINE HYDROCHLORIDE\RIBOFLAVIN 5^-PHOSPHATE SODIUM\THIAMINE HYDROCHLORIDE\VITAMIN B COMPLEX
  3. ONDANSETRON [Concomitant]
     Active Substance: ONDANSETRON
  4. PALBOCICLIB [Suspect]
     Active Substance: PALBOCICLIB
     Indication: OESOPHAGEAL CARCINOMA
     Dosage: 125 MG, DAILY
     Route: 048
     Dates: start: 20141210, end: 20150122

REACTIONS (5)
  - Transaminases increased [Unknown]
  - Ascites [Unknown]
  - Oesophageal carcinoma [Fatal]
  - Hyperbilirubinaemia [Unknown]
  - Disease progression [Fatal]

NARRATIVE: CASE EVENT DATE: 20150121
